FAERS Safety Report 6646935-0 (Version None)
Quarter: 2010Q1

REPORT INFORMATION
  Report Type: 
  Country: None (occurrence: None)
  Receive Date: 20100323
  Receipt Date: 20100116
  Transmission Date: 20100710
  Serious: Yes (Other)
  Sender: FDA-Public Use
  Company Number: US-JNJFOC-20100305918

PATIENT
  Age: 61 Year
  Sex: Male
  Weight: 99.79 kg

DRUGS (24)
  1. TYLENOL [Suspect]
     Indication: ARTHRALGIA
     Dosage: 1300MG 2-3 TIMES DAILY
     Route: 048
  2. TYLENOL [Suspect]
     Indication: MYALGIA
     Dosage: 1300MG 2-3 TIMES DAILY
     Route: 048
  3. TYLENOL (CAPLET) [Suspect]
     Indication: ARTHRALGIA
     Dosage: 1300MG, 2-3 TIMES DAILY
  4. TYLENOL (CAPLET) [Suspect]
     Indication: MYALGIA
     Dosage: 1300MG, 2-3 TIMES DAILY
  5. ATACAND [Concomitant]
     Indication: CARDIAC FAILURE CONGESTIVE
  6. DIGOXIN [Concomitant]
     Indication: CARDIAC FAILURE CONGESTIVE
  7. COUMADIN [Concomitant]
     Indication: ANTICOAGULANT THERAPY
  8. COUMADIN [Concomitant]
  9. INSPAR [Concomitant]
     Indication: CARDIAC FAILURE CONGESTIVE
  10. LASIX [Concomitant]
     Indication: HYPERTENSION
  11. COREG [Concomitant]
     Indication: HYPERTENSION
  12. COREG [Concomitant]
     Indication: CARDIAC FAILURE CONGESTIVE
  13. VYTORIN [Concomitant]
     Indication: BLOOD CHOLESTEROL INCREASED
     Dosage: 10/140 DAILY
  14. POTASSIUM [Concomitant]
     Indication: MEDICAL DIET
  15. SYNTHROID [Concomitant]
     Indication: HORMONE REPLACEMENT THERAPY
  16. UROXATRAL [Concomitant]
     Indication: BENIGN PROSTATIC HYPERPLASIA
  17. KAPIDEX [Concomitant]
     Indication: GASTROOESOPHAGEAL REFLUX DISEASE
  18. FENOFIBRATE [Concomitant]
     Indication: BLOOD CHOLESTEROL INCREASED
  19. GLIMEPIRIDE [Concomitant]
     Indication: DIABETES MELLITUS
  20. AMBIEN [Concomitant]
     Indication: INSOMNIA
  21. NEURONTIN [Concomitant]
     Indication: SCIATICA
  22. CLONAZEPAM [Concomitant]
     Indication: ANXIETY
  23. MANY OTHER UNSPECIFIED MEDICATIONS [Concomitant]
     Indication: DRY EYE
  24. MULTI-VITAMINS [Concomitant]

REACTIONS (6)
  - COLITIS [None]
  - INCORRECT DRUG ADMINISTRATION DURATION [None]
  - INTESTINAL POLYP [None]
  - NAUSEA [None]
  - PRODUCT QUALITY ISSUE [None]
  - VOMITING [None]
